FAERS Safety Report 6039299-7 (Version None)
Quarter: 2009Q1

REPORT INFORMATION
  Report Type: 
  Country: None (occurrence: None)
  Receive Date: 20090115
  Receipt Date: 20090112
  Transmission Date: 20090719
  Serious: Yes (Other)
  Sender: FDA-Public Use
  Company Number: US-WYE-H07643809

PATIENT
  Age: 76 Year
  Sex: Female
  Weight: 59.02 kg

DRUGS (7)
  1. ADVIL LIQUI-GELS [Suspect]
     Indication: HEADACHE
     Route: 048
     Dates: start: 19890101
  2. ADVIL LIQUI-GELS [Suspect]
     Indication: FIBROMYALGIA
  3. ADVIL PM [Suspect]
     Indication: HEADACHE
     Route: 048
     Dates: start: 20070101
  4. ADVIL PM [Suspect]
     Indication: FIBROMYALGIA
  5. NEURONTIN [Concomitant]
     Dosage: UNKNOWN
     Route: 048
  6. VERAPAMIL [Concomitant]
     Dosage: UNKNOWN
     Route: 048
  7. INDERAL [Concomitant]
     Dosage: UNKNOWN
     Route: 048

REACTIONS (1)
  - THROMBOSIS [None]
